FAERS Safety Report 8892615 (Version 1)
Quarter: 2012Q4

REPORT INFORMATION
  Report Type: 
  Country: US (occurrence: US)
  Receive Date: 20121107
  Receipt Date: 20121107
  Transmission Date: 20130627
  Serious: No
  Sender: FDA-Public Use
  Company Number: US-AMGEN-USASP2011057324

PATIENT
  Sex: Female

DRUGS (7)
  1. ENBREL [Suspect]
     Dosage: 50 mg, qwk
     Route: 058
  2. BYSTOLIC [Concomitant]
     Indication: PRODUCT USED FOR UNKNOWN INDICATION
     Dosage: 2.5 mg, UNK
  3. CELEBREX [Concomitant]
     Dosage: 200 mg, UNK
  4. HYDROCHLOROTHIAZIDE W/TRIAMTERENE [Concomitant]
  5. OMEGA 3 [Concomitant]
  6. CITRACAL PLUS BONE DENSITY BUILDER [Concomitant]
  7. MULTIVITAMINS [Concomitant]

REACTIONS (5)
  - Alopecia [Recovered/Resolved]
  - Stress [Recovered/Resolved]
  - Cellulitis [Recovered/Resolved]
  - Injection site erythema [Unknown]
  - Injection site pain [Unknown]
